FAERS Safety Report 7868301-2 (Version None)
Quarter: 2011Q4

REPORT INFORMATION
  Report Type: 
  Country: None (occurrence: None)
  Receive Date: 20111028
  Receipt Date: 20101213
  Transmission Date: 20120403
  Serious: No
  Sender: FDA-Public Use
  Company Number: US-AMGEN-USASP2010009239

PATIENT
  Sex: Male

DRUGS (1)
  1. ENBREL [Suspect]
     Dates: start: 20101122

REACTIONS (1)
  - OPIATES POSITIVE [None]
